FAERS Safety Report 6345185-5 (Version None)
Quarter: 2009Q3

REPORT INFORMATION
  Report Type: 
  Country: None (occurrence: None)
  Receive Date: 20090821
  Receipt Date: 20090701
  Transmission Date: 20100115
  Serious: No
  Sender: FDA-Public Use
  Company Number: 8048228

PATIENT
  Age: 25 Year
  Sex: Female
  Weight: 89.81 kg

DRUGS (7)
  1. CIMZIA [Suspect]
     Indication: CROHN'S DISEASE
     Dosage: 400 MG SC
     Route: 058
     Dates: start: 20090617
  2. CYMBALTA [Concomitant]
  3. BENZOTROPINE [Concomitant]
  4. LITHIUM [Concomitant]
  5. WELLBUTRIN [Concomitant]
  6. SEROQUEL [Concomitant]
  7. ALPRAZOLAM [Concomitant]

REACTIONS (5)
  - ABDOMINAL PAIN UPPER [None]
  - HAEMATOCHEZIA [None]
  - HYPERSOMNIA [None]
  - MALAISE [None]
  - NAUSEA [None]
